FAERS Safety Report 7936146-0 (Version None)
Quarter: 2011Q4

REPORT INFORMATION
  Report Type: 
  Country: None (occurrence: None)
  Receive Date: 20111123
  Receipt Date: 20111115
  Transmission Date: 20120403
  Serious: Yes (Hospitalization, Other)
  Sender: FDA-Public Use
  Company Number: FR-BRISTOL-MYERS SQUIBB COMPANY-13375589

PATIENT
  Age: 25 Year
  Sex: Female
  Weight: 56 kg

DRUGS (6)
  1. VIDEX [Suspect]
     Dates: start: 20050815, end: 20050908
  2. EMTRIVA [Concomitant]
     Route: 048
     Dates: start: 20050523
  3. SUSTIVA [Suspect]
     Indication: HIV INFECTION
     Route: 048
     Dates: start: 20050815, end: 20050908
  4. KALETRA [Suspect]
     Indication: HIV INFECTION
     Dates: start: 20050908
  5. VIRAMUNE [Concomitant]
     Dosage: 200 TO 400 MG/DAY
     Route: 048
     Dates: start: 20050704
  6. COMBIVIR [Suspect]
     Indication: HIV INFECTION
     Dates: start: 20050908

REACTIONS (4)
  - PREGNANCY [None]
  - VERTIGO [None]
  - INSOMNIA [None]
  - ABORTION INDUCED [None]
